FAERS Safety Report 5880233-8 (Version None)
Quarter: 2008Q3

REPORT INFORMATION
  Report Type: 
  Country: None (occurrence: None)
  Receive Date: 20080912
  Receipt Date: 20080902
  Transmission Date: 20090109
  Serious: Yes (Other)
  Sender: FDA-Public Use
  Company Number: SG-PFIZER INC-2008074439

PATIENT
  Age: 43 Year
  Sex: Female

DRUGS (1)
  1. GABAPENTIN [Suspect]

REACTIONS (2)
  - DERMATITIS EXFOLIATIVE [None]
  - RASH [None]
